FAERS Safety Report 23592806 (Version 1)
Quarter: 2024Q1

REPORT INFORMATION
  Report Type: Spontaneous
  Country: CN (occurrence: CN)
  Receive Date: 20240304
  Receipt Date: 20240304
  Transmission Date: 20240409
  Serious: Yes (Other)
  Sender: FDA-Public Use
  Company Number: CN-SANDOZ-SDZ2024CN021020

PATIENT

DRUGS (2)
  1. CYCLOPHOSPHAMIDE [Suspect]
     Active Substance: CYCLOPHOSPHAMIDE
     Indication: Mantle cell lymphoma
     Dosage: 300 MG/M2, QD
     Route: 042
  2. FLUDARABINE [Suspect]
     Active Substance: FLUDARABINE PHOSPHATE
     Indication: Mantle cell lymphoma
     Dosage: 30 MG/M2, QD
     Route: 042

REACTIONS (1)
  - Cytokine release syndrome [Unknown]
